FAERS Safety Report 17880969 (Version 2)
Quarter: 2020Q2

REPORT INFORMATION
  Report Type: Spontaneous
  Country: US (occurrence: US)
  Receive Date: 20200610
  Receipt Date: 20200617
  Transmission Date: 20200714
  Serious: Yes (Death)
  Sender: FDA-Public Use
  Company Number: US-GW PHARMA-202005USGW01963

PATIENT

DRUGS (1)
  1. EPIDIOLEX [Suspect]
     Active Substance: CANNABIDIOL
     Indication: EPILEPSY
     Dosage: 100 MILLIGRAM, BID
     Route: 048
     Dates: start: 20190310, end: 2020

REACTIONS (4)
  - Pyrexia [Fatal]
  - Product use issue [Unknown]
  - Product use in unapproved indication [Unknown]
  - Infection [Fatal]

NARRATIVE: CASE EVENT DATE: 2020
